FAERS Safety Report 4361107-0 (Version None)
Quarter: 2004Q2

REPORT INFORMATION
  Report Type: 
  Country: None (occurrence: None)
  Receive Date: 20040520
  Receipt Date: 20040514
  Transmission Date: 20050107
  Serious: Yes (Death)
  Sender: FDA-Public Use
  Company Number: GB-MERCK-0405GBR00121

PATIENT
  Sex: Male

DRUGS (1)
  1. HYDROCORTONE [Suspect]
     Indication: HYPOPITUITARISM
     Route: 048

REACTIONS (1)
  - GASTROINTESTINAL HAEMORRHAGE [None]
